FAERS Safety Report 10203496 (Version 2)
Quarter: 2014Q2

REPORT INFORMATION
  Report Type: Spontaneous
  Country: US (occurrence: None)
  Receive Date: 20140523
  Receipt Date: 20140602
  Transmission Date: 20141212
  Serious: Yes (Other)
  Sender: FDA-Public Use
  Company Number: 2014-US-006036

PATIENT
  Age: 29 Year
  Sex: Male
  Weight: 106.6 kg

DRUGS (6)
  1. XYREM [Suspect]
     Indication: MYOCLONUS
     Route: 048
     Dates: start: 201112
  2. XYREM [Suspect]
     Indication: POST-ANOXIC MYOCLONUS
     Route: 048
     Dates: start: 201112
  3. CELEXA (CITALOPRAM HYDROBROMIDE) [Concomitant]
  4. DEPAKOTE (VALPROATE SEMISODIUM) [Concomitant]
  5. KEPPRA (LEVETIRACETAM) [Concomitant]
  6. KLONOPIN (CLONAZEPAM) [Concomitant]

REACTIONS (3)
  - Blood cholesterol increased [None]
  - Hypertension [None]
  - Off label use [None]
